FAERS Safety Report 5879388-0 (Version None)
Quarter: 2008Q3

REPORT INFORMATION
  Report Type: 
  Country: None (occurrence: None)
  Receive Date: 20080912
  Receipt Date: 20080901
  Transmission Date: 20090109
  Serious: Yes (Hospitalization, Disabling)
  Sender: FDA-Public Use
  Company Number: B0524613A

PATIENT
  Age: 10 Year
  Sex: Male
  Weight: 38 kg

DRUGS (7)
  1. ATRIANCE [Suspect]
     Indication: T-CELL TYPE ACUTE LEUKAEMIA
     Dosage: 650MGM2 CYCLIC
     Route: 042
     Dates: start: 20071108, end: 20080114
  2. METHOTREXATE [Concomitant]
     Indication: T-CELL TYPE ACUTE LEUKAEMIA
     Route: 037
     Dates: start: 20071120, end: 20080124
  3. ARACYTINE [Concomitant]
     Indication: T-CELL TYPE ACUTE LEUKAEMIA
     Route: 037
     Dates: start: 20071120, end: 20080124
  4. CORTICOID [Concomitant]
     Indication: T-CELL TYPE ACUTE LEUKAEMIA
     Route: 037
     Dates: start: 20071120, end: 20080124
  5. PEGASPARGASE [Concomitant]
     Indication: T-CELL TYPE ACUTE LEUKAEMIA
     Route: 065
     Dates: start: 20080131, end: 20080131
  6. MEDICAMENT [Concomitant]
     Indication: T-CELL TYPE ACUTE LEUKAEMIA
     Route: 065
     Dates: start: 20080831, end: 20080831
  7. MEDICAMENT [Concomitant]
     Dates: start: 20080305, end: 20080305

REACTIONS (5)
  - ATAXIA [None]
  - BALANCE DISORDER [None]
  - HYPOAESTHESIA [None]
  - SENSORY DISTURBANCE [None]
  - SPINAL CORD DISORDER [None]
